FAERS Safety Report 17260504 (Version 5)
Quarter: 2020Q1

REPORT INFORMATION
  Report Type: Spontaneous
  Country: NL (occurrence: NL)
  Receive Date: 20200113
  Receipt Date: 20200319
  Transmission Date: 20200409
  Serious: Yes (Other)
  Sender: FDA-Public Use
  Company Number: NL-AUROBINDO-AUR-APL-2020-001700

PATIENT
  Age: 6 Month
  Sex: Female

DRUGS (2)
  1. KRUIDVAT PARACETAMOL 120 MG SUPPOSITORY [Suspect]
     Active Substance: ACETAMINOPHEN
     Indication: PYREXIA
     Dosage: 120 MILLIGRAM (1 SUPPOSITORY IN TOTAL)
     Route: 054
     Dates: start: 20191230, end: 20191230
  2. KRUIDVAT PARACETAMOL 120 MG SUPPOSITORY [Suspect]
     Active Substance: ACETAMINOPHEN
     Indication: MALAISE

REACTIONS (6)
  - Hypothermia [Recovered/Resolved]
  - Cold sweat [Unknown]
  - Somnolence [Unknown]
  - Product size issue [Unknown]
  - Pallor [Unknown]
  - Feeling cold [Unknown]

NARRATIVE: CASE EVENT DATE: 20191230
